FAERS Safety Report 16260227 (Version 1)
Quarter: 2019Q2

REPORT INFORMATION
  Report Type: Spontaneous
  Country: US (occurrence: US)
  Receive Date: 20190327
  Receipt Date: 20190327
  Transmission Date: 20190711
  Serious: Yes (Hospitalization)
  Sender: FDA-Public Use
  Company Number: None

PATIENT
  Age: 61 Year
  Sex: Female
  Weight: 65 kg

DRUGS (23)
  1. ALBUTEROL. [Concomitant]
     Active Substance: ALBUTEROL
  2. DIPHENHYDRAMINE. [Concomitant]
     Active Substance: DIPHENHYDRAMINE
  3. FOSFOMYCIN [Concomitant]
     Active Substance: FOSFOMYCIN
  4. MIRTAZAPINE. [Concomitant]
     Active Substance: MIRTAZAPINE
  5. PANTOPRAZOLE [Concomitant]
     Active Substance: PANTOPRAZOLE
  6. AMLODIPINE [Concomitant]
     Active Substance: AMLODIPINE BESYLATE
  7. CLOPIDOGREL [Concomitant]
     Active Substance: CLOPIDOGREL BISULFATE
  8. IBUPROFEN. [Concomitant]
     Active Substance: IBUPROFEN
  9. METFORMIN [Concomitant]
     Active Substance: METFORMIN HYDROCHLORIDE
  10. SYMBICORT [Concomitant]
     Active Substance: BUDESONIDE\FORMOTEROL FUMARATE DIHYDRATE
  11. ARIPIPRAZOLE. [Concomitant]
     Active Substance: ARIPIPRAZOLE
  12. CETIRIZINE [Concomitant]
     Active Substance: CETIRIZINE HYDROCHLORIDE
  13. SULFAMETHOXAZOLE-TRIMETHOPRIM [Concomitant]
     Active Substance: SULFAMETHOXAZOLE\TRIMETHOPRIM
  14. MAVYRET [Suspect]
     Active Substance: GLECAPREVIR\PIBRENTASVIR
     Indication: HEPATITIS C
     Dosage: ?          OTHER DOSE:100-40 1X / DAY ORAL?
     Route: 048
     Dates: start: 20180922, end: 20181119
  15. ASPIRIN. [Concomitant]
     Active Substance: ASPIRIN
  16. CYANOCOBALAMIN. [Concomitant]
     Active Substance: CYANOCOBALAMIN
  17. DICLOFENAC [Concomitant]
     Active Substance: DICLOFENAC
  18. FERROUS SULFATE. [Concomitant]
     Active Substance: FERROUS SULFATE
  19. VENTOFIN HFA [Concomitant]
  20. NICOTINE POLACRILEX [Concomitant]
     Active Substance: NICOTINE
  21. ONDANSETRON [Concomitant]
     Active Substance: ONDANSETRON
  22. TIOTROPIUKM [Concomitant]
  23. ATORVASTATIN [Concomitant]
     Active Substance: ATORVASTATIN

REACTIONS (6)
  - Dizziness [None]
  - Blood magnesium decreased [None]
  - Blood potassium decreased [None]
  - Urinary tract infection [None]
  - Mass [None]
  - Vomiting [None]

NARRATIVE: CASE EVENT DATE: 20181221
